FAERS Safety Report 7168017-4 (Version None)
Quarter: 2010Q4

REPORT INFORMATION
  Report Type: 
  Country: None (occurrence: None)
  Receive Date: 20101216
  Receipt Date: 20101129
  Transmission Date: 20110411
  Serious: No
  Sender: FDA-Public Use
  Company Number: US-B.I. PHARMACEUTICALS,INC./RIDGEFIELD-2010-BP-13465BP

PATIENT
  Age: 82 Year
  Sex: Male

DRUGS (10)
  1. PRADAXA [Suspect]
     Indication: ATRIAL FIBRILLATION
     Dosage: 300 MG
     Route: 048
     Dates: start: 20101108
  2. GLYBURIDE [Concomitant]
     Indication: TYPE 2 DIABETES MELLITUS
  3. FLOMAX - GENERIC [Concomitant]
     Indication: BENIGN PROSTATIC HYPERPLASIA
  4. PROSCAR [Concomitant]
     Indication: BENIGN PROSTATIC HYPERPLASIA
  5. FUROSEMIDE [Concomitant]
     Indication: HYPERTENSION
  6. LISINOPRIL AND HYDROCHLOROTHIAZIDE [Concomitant]
     Indication: HYPERTENSION
  7. BUSPAR [Concomitant]
     Indication: ANXIETY
  8. TRAZODONE HCL [Concomitant]
     Indication: ANXIETY
  9. LIPITOR [Concomitant]
     Indication: BLOOD CHOLESTEROL INCREASED
  10. TRICOR [Concomitant]
     Indication: BLOOD CHOLESTEROL INCREASED

REACTIONS (1)
  - BLOOD GLUCOSE INCREASED [None]
